FAERS Safety Report 17334111 (Version 1)
Quarter: 2020Q1

REPORT INFORMATION
  Report Type: Spontaneous
  Country: FR (occurrence: FR)
  Receive Date: 20200128
  Receipt Date: 20200128
  Transmission Date: 20200409
  Serious: Yes (Other)
  Sender: FDA-Public Use
  Company Number: FR-TEVA-2020-FR-1174973

PATIENT
  Age: 11 Year
  Sex: Male
  Weight: 33.5 kg

DRUGS (15)
  1. BACTRIM [Concomitant]
     Active Substance: SULFAMETHOXAZOLE\TRIMETHOPRIM
  2. ZOPHREN [Concomitant]
     Active Substance: ONDANSETRON
  3. ONDANSETRON [Concomitant]
     Active Substance: ONDANSETRON
  4. BUDESONIDE. [Concomitant]
     Active Substance: BUDESONIDE
  5. GRANOCYTE [Concomitant]
     Active Substance: LENOGRASTIM
  6. MICROPAKINE [Concomitant]
     Active Substance: VALPROATE SODIUM
  7. METHYLPREDNISOLONE MYLAN [Suspect]
     Active Substance: METHYLPREDNISOLONE
     Indication: SARCOMA
     Dosage: 40 MG
     Route: 042
     Dates: start: 20191219, end: 20191221
  8. LOVENOX [Concomitant]
     Active Substance: ENOXAPARIN SODIUM
  9. LARGACTIL [Suspect]
     Active Substance: CHLORPROMAZINE
     Indication: PRODUCT USED FOR UNKNOWN INDICATION
     Dosage: 15 MG
     Route: 042
     Dates: start: 20191220, end: 20191221
  10. IFOSFAMIDE. [Suspect]
     Active Substance: IFOSFAMIDE
     Indication: SARCOMA
     Dosage: 3G/M2
     Route: 042
     Dates: start: 20191218, end: 20191220
  11. TRAMADOL (CHLORHYDRATE DE) [Concomitant]
     Active Substance: TRAMADOL HYDROCHLORIDE
  12. AUGMENTIN [Concomitant]
     Active Substance: AMOXICILLIN\CLAVULANATE POTASSIUM
  13. PARACETAMOL [Concomitant]
     Active Substance: ACETAMINOPHEN
  14. DOXORUBICIN [Suspect]
     Active Substance: DOXORUBICIN
     Indication: SARCOMA
     Dosage: 37.5 MG/ M2
     Route: 042
     Dates: start: 20191218, end: 20191220
  15. PLITICAN [Suspect]
     Active Substance: ALIZAPRIDE HYDROCHLORIDE
     Indication: ANTIEMETIC SUPPORTIVE CARE
     Dosage: 60 MG
     Route: 042
     Dates: start: 20191219, end: 20191219

REACTIONS (2)
  - Rash erythematous [Recovered/Resolved]
  - Rash maculo-papular [Recovered/Resolved]

NARRATIVE: CASE EVENT DATE: 20191221
